FAERS Safety Report 16871213 (Version 1)
Quarter: 2019Q3

REPORT INFORMATION
  Report Type: Spontaneous
  Country: US (occurrence: US)
  Receive Date: 20190930
  Receipt Date: 20190930
  Transmission Date: 20191005
  Serious: No
  Sender: FDA-Public Use
  Company Number: US-GLAXOSMITHKLINE-US2019175444

PATIENT
  Age: 35 Year
  Sex: Female

DRUGS (1)
  1. BENLYSTA [Suspect]
     Active Substance: BELIMUMAB
     Indication: PRODUCT USED FOR UNKNOWN INDICATION
     Dosage: 200 MG, WE
     Route: 065
     Dates: start: 2018

REACTIONS (3)
  - Wrong technique in device usage process [Unknown]
  - Extra dose administered [Unknown]
  - Condition aggravated [Unknown]

NARRATIVE: CASE EVENT DATE: 201909
